FAERS Safety Report 8958839 (Version 1)
Quarter: 2012Q4

REPORT INFORMATION
  Report Type: 
  Country: AU (occurrence: AU)
  Receive Date: 20121212
  Receipt Date: 20121212
  Transmission Date: 20130627
  Serious: Yes (Other)
  Sender: FDA-Public Use
  Company Number: AU-BAYER-2012-130424

PATIENT
  Age: 67 Year
  Sex: Female

DRUGS (1)
  1. ULTRAVIST [Suspect]
     Indication: COMPUTERISED TOMOGRAM ABDOMEN
     Dosage: 75 ml, ONCE
     Dates: start: 20121212, end: 20121212

REACTIONS (3)
  - Eye haemorrhage [Recovering/Resolving]
  - Cough [Recovering/Resolving]
  - Urticaria [Recovering/Resolving]
